FAERS Safety Report 7116230-4 (Version None)
Quarter: 2010Q4

REPORT INFORMATION
  Report Type: 
  Country: None (occurrence: None)
  Receive Date: 20101122
  Receipt Date: 20101111
  Transmission Date: 20110411
  Serious: Yes (Death, Other)
  Sender: FDA-Public Use
  Company Number: FR-GENZYME-FLUD-1000383

PATIENT
  Age: 72 Year
  Sex: Male

DRUGS (6)
  1. FLUDARA [Suspect]
     Indication: CHRONIC LYMPHOCYTIC LEUKAEMIA
     Dosage: UNK
     Route: 065
     Dates: start: 20060901
  2. CYCLOPHOSPHAMIDE [Suspect]
     Indication: CHRONIC LYMPHOCYTIC LEUKAEMIA
     Dosage: UNK
     Route: 065
     Dates: start: 20060901
  3. RITUXIMAB [Suspect]
     Indication: CHRONIC LYMPHOCYTIC LEUKAEMIA
     Dosage: 375 MG/M2, UNK
     Route: 065
     Dates: start: 20060901
  4. PREDNISONE [Suspect]
     Indication: NEUTROPENIA
     Dosage: 60 MG, UNK
     Route: 065
  5. PREDNISONE [Suspect]
     Dosage: 10 MG, UNK
     Route: 065
  6. COTRIMOXAZOLE [Concomitant]
     Indication: PNEUMOCYSTIS JIROVECI PNEUMONIA
     Dosage: UNK
     Route: 065

REACTIONS (2)
  - AGRANULOCYTOSIS [None]
  - GASTRIC HAEMORRHAGE [None]
